FAERS Safety Report 4708844-3 (Version None)
Quarter: 2005Q3

REPORT INFORMATION
  Report Type: 
  Country: None (occurrence: None)
  Receive Date: 20050705
  Receipt Date: 20050623
  Transmission Date: 20060218
  Serious: Yes (Other)
  Sender: FDA-Public Use
  Company Number: 2005092067

PATIENT
  Sex: Female

DRUGS (4)
  1. STREPTOMYCIN SULFATE [Suspect]
     Indication: TUBERCULOSIS
     Dosage: 1000 MG (1 IN 1 D), INTRAMUSCULAR
     Route: 030
  2. ISONIAZID [Concomitant]
  3. RIFAMPICIN [Concomitant]
  4. PYRAZINAMIDE [Concomitant]

REACTIONS (20)
  - ACID FAST STAIN POSITIVE [None]
  - ANAEMIA [None]
  - ANURIA [None]
  - BLOOD CREATININE INCREASED [None]
  - BLOOD UREA INCREASED [None]
  - CHEST X-RAY ABNORMAL [None]
  - DEPRESSED LEVEL OF CONSCIOUSNESS [None]
  - HAEMATEMESIS [None]
  - HAEMOPTYSIS [None]
  - HYPOTENSION [None]
  - LYMPHOCYTE PERCENTAGE DECREASED [None]
  - RED BLOOD CELL SEDIMENTATION RATE INCREASED [None]
  - SINUS TACHYCARDIA [None]
  - SKIN BACTERIAL INFECTION [None]
  - SKIN TEST POSITIVE [None]
  - STAPHYLOCOCCAL INFECTION [None]
  - STRESS ULCER [None]
  - TOXIC EPIDERMAL NECROLYSIS [None]
  - ULCER HAEMORRHAGE [None]
  - WEIGHT INCREASED [None]
